FAERS Safety Report 9064251 (Version 1)
Quarter: 2013Q1

REPORT INFORMATION
  Report Type: Report from Study
  Country: US (occurrence: US)
  Receive Date: 20130131
  Receipt Date: 20130131
  Transmission Date: 20140127
  Serious: No
  Sender: FDA-Public Use
  Company Number: US-ABBOTT-12P-163-1022171-00

PATIENT
  Sex: Female
  Weight: 72.19 kg

DRUGS (2)
  1. HUMIRA [Suspect]
     Indication: PSORIASIS
     Route: 058
     Dates: start: 201101
  2. NUVARING [Concomitant]
     Indication: CONTRACEPTION

REACTIONS (2)
  - Respiratory tract infection fungal [Recovered/Resolved]
  - Nausea [Not Recovered/Not Resolved]
